FAERS Safety Report 10866416 (Version 1)
Quarter: 2015Q1

REPORT INFORMATION
  Report Type: Spontaneous
  Country: US (occurrence: None)
  Receive Date: 20150219
  Receipt Date: 20150219
  Transmission Date: 20150721
  Serious: No
  Sender: FDA-Public Use
  Company Number: None

PATIENT
  Age: 83 Year
  Sex: Female
  Weight: 70.31 kg

DRUGS (1)
  1. ESZOPICLONE 1 MG DR. REDDY [Suspect]
     Active Substance: ESZOPICLONE
     Indication: INSOMNIA
     Dosage: TAKEN BY MOUTH, AT BEDTIME
     Dates: start: 20150108, end: 20150212

REACTIONS (3)
  - Product substitution issue [None]
  - Insomnia [None]
  - Drug ineffective [None]

NARRATIVE: CASE EVENT DATE: 20150212
